FAERS Safety Report 5872694-5 (Version None)
Quarter: 2008Q3

REPORT INFORMATION
  Report Type: 
  Country: None (occurrence: None)
  Receive Date: 20080905
  Receipt Date: 20080829
  Transmission Date: 20090109
  Serious: Yes (Hospitalization)
  Sender: FDA-Public Use
  Company Number: US-AMGEN-QUU304857

PATIENT
  Sex: Male

DRUGS (2)
  1. ENBREL [Suspect]
     Indication: PSORIASIS
     Route: 058
  2. ENBREL [Suspect]
     Indication: PSORIATIC ARTHROPATHY

REACTIONS (6)
  - CYSTITIS [None]
  - DIVERTICULITIS [None]
  - GASTROINTESTINAL INFECTION [None]
  - PSORIASIS [None]
  - PSORIATIC ARTHROPATHY [None]
  - URINE ABNORMALITY [None]
